FAERS Safety Report 5663161-2 (Version None)
Quarter: 2008Q1

REPORT INFORMATION
  Report Type: 
  Country: None (occurrence: None)
  Receive Date: 20080313
  Receipt Date: 20080305
  Transmission Date: 20080703
  Serious: Yes (Hospitalization, Other)
  Sender: FDA-Public Use
  Company Number: FR-PFIZER INC-2008021512

PATIENT
  Sex: Male

DRUGS (4)
  1. ZOLOFT [Suspect]
     Indication: DEPRESSION
     Dosage: DAILY DOSE:50MG
  2. PREVISCAN [Concomitant]
  3. REBETOL [Concomitant]
  4. VIRAFERONPEG [Concomitant]

REACTIONS (5)
  - ASTHENIA [None]
  - ERYSIPELAS [None]
  - HAEMATOMA [None]
  - HYPONATRAEMIA [None]
  - PHLEBITIS [None]
